FAERS Safety Report 11638716 (Version 1)
Quarter: 2015Q4

REPORT INFORMATION
  Report Type: Spontaneous
  Country: US (occurrence: US)
  Receive Date: 20151016
  Receipt Date: 20151016
  Transmission Date: 20160304
  Serious: No
  Sender: FDA-Public Use
  Company Number: US-009507513-1509USA011403

PATIENT
  Age: 31 Year
  Sex: Male

DRUGS (1)
  1. BELSOMRA [Suspect]
     Active Substance: SUVOREXANT
     Indication: SLEEP DISORDER
     Dosage: 1 TABLET NIGHTLY
     Route: 048
     Dates: end: 20150914

REACTIONS (4)
  - Hyperhidrosis [Unknown]
  - Skin odour abnormal [Unknown]
  - Musculoskeletal discomfort [Unknown]
  - Skin disorder [Unknown]

NARRATIVE: CASE EVENT DATE: 201509
